FAERS Safety Report 17505266 (Version 1)
Quarter: 2020Q1

REPORT INFORMATION
  Report Type: Spontaneous
  Country: US (occurrence: US)
  Receive Date: 20200225
  Receipt Date: 20200225
  Transmission Date: 20200409
  Serious: Yes (Other)
  Sender: FDA-Public Use
  Company Number: None

PATIENT
  Age: 12 Year
  Sex: Male
  Weight: 30.84 kg

DRUGS (2)
  1. METHYLPHENIDATE ER 18MG [Suspect]
     Active Substance: METHYLPHENIDATE
     Indication: ATTENTION DEFICIT/HYPERACTIVITY DISORDER
     Route: 048
     Dates: start: 201811, end: 201812
  2. METHYLPHENIDATE ER 18MG [Suspect]
     Active Substance: METHYLPHENIDATE
     Indication: ATTENTION DEFICIT/HYPERACTIVITY DISORDER
     Route: 048
     Dates: start: 20191015, end: 201911

REACTIONS (4)
  - Aggression [None]
  - Product substitution issue [None]
  - Abdominal pain upper [None]
  - Depression [None]

NARRATIVE: CASE EVENT DATE: 20191015
